FAERS Safety Report 10027675 (Version 1)
Quarter: 2014Q1

REPORT INFORMATION
  Report Type: Spontaneous
  Country: NG (occurrence: NG)
  Receive Date: 20140321
  Receipt Date: 20140321
  Transmission Date: 20141002
  Serious: Yes (Death)
  Sender: FDA-Public Use
  Company Number: NG-ASTRAZENECA-2014SE19240

PATIENT
  Age: 75 Year
  Sex: Female

DRUGS (5)
  1. MERONEM [Suspect]
     Dosage: EVERY EIGHT HOURS
     Route: 042
     Dates: start: 20140106, end: 20140110
  2. METRONIDAZOLE [Concomitant]
     Route: 042
  3. AMLODIPINE [Concomitant]
     Route: 048
  4. GALVUSMET [Concomitant]
     Route: 048
  5. ONDANSETRON [Concomitant]
     Route: 042

REACTIONS (1)
  - Acute hepatic failure [Fatal]
